FAERS Safety Report 10184032 (Version 1)
Quarter: 2014Q2

REPORT INFORMATION
  Report Type: Spontaneous
  Country: GB (occurrence: GB)
  Receive Date: 20140520
  Receipt Date: 20140520
  Transmission Date: 20141212
  Serious: Yes (Hospitalization)
  Sender: FDA-Public Use
  Company Number: GB-GLAXOSMITHKLINE-B0993715A

PATIENT
  Age: 22 Year
  Sex: Female

DRUGS (2)
  1. FLIXOTIDE [Suspect]
     Indication: ASTHMA
     Dosage: 2PUFF TWICE PER DAY
     Route: 055
  2. SERETIDE [Concomitant]
     Dosage: 2PUFF TWICE PER DAY
     Route: 055

REACTIONS (1)
  - Anaphylactic reaction [Recovered/Resolved]
